FAERS Safety Report 9897169 (Version 1)
Quarter: 2014Q1

REPORT INFORMATION
  Report Type: Spontaneous
  Country: US (occurrence: US)
  Receive Date: 20140214
  Receipt Date: 20140214
  Transmission Date: 20141002
  Serious: Yes (Other)
  Sender: FDA-Public Use
  Company Number: US-ASTRAZENECA-2014SE09224

PATIENT
  Age: 80 Year
  Sex: Male
  Weight: 92.5 kg

DRUGS (4)
  1. CRESTOR [Suspect]
     Indication: LIPIDS INCREASED
     Route: 048
     Dates: start: 20140128
  2. ALL NATURAL PROSTATE FROM LIFE EXTENSION FOUNDATION [Concomitant]
     Indication: PROSTATIC DISORDER
     Route: 048
     Dates: start: 2004
  3. BABY ASPIRIN [Concomitant]
     Route: 048
  4. LIPITOR [Concomitant]

REACTIONS (4)
  - Micturition frequency decreased [Recovered/Resolved]
  - Urine output increased [Recovered/Resolved]
  - Urine flow decreased [Not Recovered/Not Resolved]
  - Stress [Not Recovered/Not Resolved]
